FAERS Safety Report 4835702-6 (Version None)
Quarter: 2005Q4

REPORT INFORMATION
  Report Type: 
  Country: None (occurrence: None)
  Receive Date: 20051121
  Receipt Date: 20051116
  Transmission Date: 20060501
  Serious: Yes (Other)
  Sender: FDA-Public Use
  Company Number: 163-20785-05080017

PATIENT
  Age: 45 Year
  Sex: Female
  Weight: 102.5129 kg

DRUGS (6)
  1. THALOMID [Suspect]
     Indication: MULTIPLE MYELOMA
     Dosage: 150 MG, DAILY, ORAL
     Route: 048
     Dates: start: 20050317, end: 20050701
  2. THALOMID [Suspect]
     Indication: MULTIPLE MYELOMA
     Dosage: 150 MG, DAILY, ORAL
     Route: 048
     Dates: start: 20050901, end: 20051001
  3. THALOMID [Suspect]
     Indication: MULTIPLE MYELOMA
     Dosage: 150 MG, DAILY, ORAL
     Route: 048
     Dates: start: 20050801
  4. THALOMID [Suspect]
     Indication: MULTIPLE MYELOMA
     Dosage: 150 MG, DAILY, ORAL
     Route: 048
     Dates: start: 20051001
  5. LABETALOL HCL [Concomitant]
  6. TYLENOL ES (PARACETAMOL) [Concomitant]

REACTIONS (9)
  - BLOOD CREATININE INCREASED [None]
  - BLOOD GLUCOSE INCREASED [None]
  - BLOOD HUMAN CHORIONIC GONADOTROPIN ABNORMAL [None]
  - BLOOD UREA INCREASED [None]
  - CARBON DIOXIDE DECREASED [None]
  - CELLULITIS [None]
  - HAEMOGLOBIN INCREASED [None]
  - OEDEMA PERIPHERAL [None]
  - PARAESTHESIA ORAL [None]
